FAERS Safety Report 10218676 (Version 2)
Quarter: 2014Q3

REPORT INFORMATION
  Report Type: Spontaneous
  Country: US (occurrence: US)
  Receive Date: 20140605
  Receipt Date: 20140715
  Transmission Date: 20150326
  Serious: Yes (Hospitalization, Other)
  Sender: FDA-Public Use
  Company Number: US-FRI-1000067743

PATIENT
  Age: 12 Year
  Sex: Female

DRUGS (4)
  1. VIIBRYD [Suspect]
     Active Substance: VILAZODONE HYDROCHLORIDE
     Indication: DEPRESSION
     Dosage: 10 MG
     Route: 048
     Dates: start: 2012
  2. VIIBRYD [Suspect]
     Active Substance: VILAZODONE HYDROCHLORIDE
     Dosage: 40 MG
     Route: 048
     Dates: start: 201406
  3. VIIBRYD [Suspect]
     Active Substance: VILAZODONE HYDROCHLORIDE
     Indication: ANXIETY
     Dosage: 20 MG
     Route: 048
     Dates: end: 201406
  4. STRATTERA [Concomitant]
     Active Substance: ATOMOXETINE HYDROCHLORIDE
     Indication: ATTENTION DEFICIT/HYPERACTIVITY DISORDER

REACTIONS (4)
  - Menstruation irregular [Recovered/Resolved]
  - Off label use [Not Recovered/Not Resolved]
  - Menometrorrhagia [Recovered/Resolved]
  - Haemoglobin decreased [Recovering/Resolving]

NARRATIVE: CASE EVENT DATE: 2012
